FAERS Safety Report 25780824 (Version 1)
Quarter: 2025Q3

REPORT INFORMATION
  Report Type: Report from Study
  Country: US (occurrence: US)
  Receive Date: 20250909
  Receipt Date: 20250909
  Transmission Date: 20251021
  Serious: Yes (Hospitalization)
  Sender: JAZZ
  Company Number: US-JAZZ PHARMACEUTICALS-2025-US-021438

PATIENT
  Sex: Female

DRUGS (3)
  1. EPIDIOLEX [Suspect]
     Active Substance: CANNABIDIOL
     Indication: Lennox-Gastaut syndrome
     Dosage: 1 MILLIGRAM, BID, G-TUBE
     Dates: start: 202501
  2. EPIDIOLEX [Suspect]
     Active Substance: CANNABIDIOL
     Indication: Encephalopathy
  3. EPIDIOLEX [Suspect]
     Active Substance: CANNABIDIOL
     Indication: Congenital central nervous system anomaly

REACTIONS (1)
  - Hospitalisation [Not Recovered/Not Resolved]
